FAERS Safety Report 5061293-3 (Version None)
Quarter: 2006Q3

REPORT INFORMATION
  Report Type: 
  Country: None (occurrence: None)
  Receive Date: 20060721
  Receipt Date: 20060721
  Transmission Date: 20061208
  Serious: Yes (Death)
  Sender: FDA-Public Use
  Company Number: None

PATIENT
  Age: 24 Year
  Sex: Male
  Weight: 68.2 kg

DRUGS (8)
  1. PROPOFOL [Suspect]
     Indication: COMA
     Dosage: 2MG/KG LOAD, 0.1MG/KG/MIN MAINTENANCE *TITRATED TO BURST SUPPRESSION
     Dates: start: 20060607, end: 20060608
  2. PROPOFOL [Suspect]
     Indication: CONVULSION
     Dosage: 2MG/KG LOAD, 0.1MG/KG/MIN MAINTENANCE *TITRATED TO BURST SUPPRESSION
     Dates: start: 20060607, end: 20060608
  3. TRANXENE [Concomitant]
  4. PEPCID [Concomitant]
  5. KEPPRA [Concomitant]
  6. SINEMET [Concomitant]
  7. MIRAPEX [Concomitant]
  8. VARIOUS PRESSORS [Concomitant]

REACTIONS (8)
  - ACIDOSIS [None]
  - ARRHYTHMIA [None]
  - BLOOD METHAEMOGLOBIN PRESENT [None]
  - CARDIO-RESPIRATORY ARREST [None]
  - HYPOTENSION [None]
  - METABOLIC ACIDOSIS [None]
  - RHABDOMYOLYSIS [None]
  - TACHYCARDIA [None]
